FAERS Safety Report 5204326-3 (Version None)
Quarter: 2007Q1

REPORT INFORMATION
  Report Type: 
  Country: None (occurrence: None)
  Receive Date: 20070110
  Receipt Date: 20060215
  Transmission Date: 20070707
  Serious: Yes (Other)
  Sender: FDA-Public Use
  Company Number: US-BRISTOL-MYERS SQUIBB COMPANY-13284591

PATIENT
  Age: 29 Year
  Sex: Male

DRUGS (11)
  1. ABILIFY [Suspect]
     Indication: ABNORMAL BEHAVIOUR
     Route: 048
     Dates: start: 20040101, end: 20060101
  2. ABILIFY [Suspect]
     Indication: AGGRESSION
     Route: 048
     Dates: start: 20040101, end: 20060101
  3. LAMICTAL [Concomitant]
  4. TOPAMAX [Concomitant]
  5. KLONOPIN [Concomitant]
  6. SYNTHROID [Concomitant]
  7. ASCORBIC ACID [Concomitant]
  8. MAGNESIUM [Concomitant]
  9. IRON [Concomitant]
  10. ZINC [Concomitant]
  11. FOLATE [Concomitant]

REACTIONS (1)
  - CONVULSION [None]
